FAERS Safety Report 15153319 (Version 1)
Quarter: 2018Q3

REPORT INFORMATION
  Report Type: Spontaneous
  Country: PT (occurrence: PT)
  Receive Date: 20180717
  Receipt Date: 20180717
  Transmission Date: 20181010
  Serious: Yes (Life-Threatening)
  Sender: FDA-Public Use
  Company Number: PT-MYLANLABS-2018M1050125

PATIENT
  Age: 77 Year
  Sex: Male
  Weight: 70 kg

DRUGS (9)
  1. AMIODARONE [Suspect]
     Active Substance: AMIODARONE
     Indication: ACUTE CORONARY SYNDROME
     Dosage: EM DIAS ALTERNADOS
     Route: 048
     Dates: start: 20140225
  2. CAPTOPRIL. [Concomitant]
     Active Substance: CAPTOPRIL
     Indication: ACUTE CORONARY SYNDROME
     Dosage: 6.25 MG, QD
     Route: 048
     Dates: start: 20140217
  3. LEVOTIROXINA                       /00068001/ [Concomitant]
     Indication: HYPOTHYROIDISM
     Route: 048
  4. ESPIRONOLACTONA [Concomitant]
     Active Substance: SPIRONOLACTONE
     Indication: ACUTE CORONARY SYNDROME
     Dosage: 25 MG, QD
     Route: 048
     Dates: start: 20140219
  5. FUROSEMIDA                         /00032601/ [Concomitant]
     Active Substance: FUROSEMIDE
     Indication: ACUTE CORONARY SYNDROME
     Dosage: 40 MG, QD
     Route: 048
     Dates: start: 20140217
  6. TANSULOSINA [Concomitant]
     Indication: PRODUCT USED FOR UNKNOWN INDICATION
     Dosage: UTILIZADO EM CONTEXTO HOSPITALAR
     Route: 048
  7. PRAVASTATINA                       /00880401/ [Concomitant]
     Indication: DYSLIPIDAEMIA
     Dosage: 40 MG, QD
     Route: 048
     Dates: start: 20140217
  8. PRADAXA [Interacting]
     Active Substance: DABIGATRAN ETEXILATE MESYLATE
     Indication: ACUTE CORONARY SYNDROME
     Dosage: 110 MG, QD
     Route: 048
     Dates: start: 20140303, end: 20140416
  9. CARVEDILOL. [Concomitant]
     Active Substance: CARVEDILOL
     Indication: ACUTE CORONARY SYNDROME
     Dosage: 6.25 MG, QD
     Route: 048
     Dates: start: 20140220

REACTIONS (7)
  - Hypotension [Recovering/Resolving]
  - Haematochezia [Recovering/Resolving]
  - Haematuria [Recovered/Resolved]
  - Drug interaction [Unknown]
  - Epistaxis [Recovered/Resolved]
  - Rectal haemorrhage [Recovered/Resolved]
  - Anaemia [Recovering/Resolving]

NARRATIVE: CASE EVENT DATE: 20140416
